FAERS Safety Report 24588140 (Version 2)
Quarter: 2025Q3

REPORT INFORMATION
  Report Type: Report from Study
  Country: CA (occurrence: CA)
  Receive Date: 20241107
  Receipt Date: 20250922
  Transmission Date: 20251021
  Serious: Yes (Hospitalization)
  Sender: SAMSUNG BIOEPIS
  Company Number: CA-SAMSUNG BIOEPIS-SB-2024-33030

PATIENT
  Age: 44 Year
  Sex: Female

DRUGS (3)
  1. ETANERCEPT [Suspect]
     Active Substance: ETANERCEPT
     Indication: Ankylosing spondylitis
     Dosage: 50MG/ML;
     Route: 058
     Dates: start: 20221226, end: 202406
  2. ETANERCEPT [Suspect]
     Active Substance: ETANERCEPT
     Dosage: 50MG/ML;
     Route: 058
     Dates: start: 20241028
  3. ETANERCEPT [Suspect]
     Active Substance: ETANERCEPT
     Dates: start: 20221226

REACTIONS (4)
  - Haematological infection [Recovered/Resolved]
  - Inflammation [Recovered/Resolved]
  - Influenza [Not Recovered/Not Resolved]
  - Off label use [Unknown]

NARRATIVE: CASE EVENT DATE: 20241028
